FAERS Safety Report 5584297-0 (Version None)
Quarter: 2008Q1

REPORT INFORMATION
  Report Type: 
  Country: None (occurrence: None)
  Receive Date: 20080108
  Receipt Date: 20080104
  Transmission Date: 20080703
  Serious: Yes (Hospitalization)
  Sender: FDA-Public Use
  Company Number: B0501973A

PATIENT
  Sex: Female
  Weight: 80 kg

DRUGS (5)
  1. AVANDIA [Suspect]
     Dosage: 4MG PER DAY
     Route: 048
     Dates: start: 20030101, end: 20071228
  2. DIOVAN HCT [Concomitant]
     Route: 048
     Dates: start: 20030101
  3. REPAGLINIDE [Concomitant]
     Route: 048
     Dates: start: 20030101
  4. METFORMIN HCL [Concomitant]
     Route: 048
     Dates: start: 20030101
  5. SERETIDE [Concomitant]
     Indication: ASTHMA
     Dosage: 500MG PER DAY
     Route: 055
     Dates: start: 20030101

REACTIONS (2)
  - OEDEMA [None]
  - TACHYCARDIA [None]
